FAERS Safety Report 6747073-9 (Version None)
Quarter: 2010Q2

REPORT INFORMATION
  Report Type: 
  Country: None (occurrence: None)
  Receive Date: 20100528
  Receipt Date: 20100519
  Transmission Date: 20101027
  Serious: Yes (Hospitalization, Other)
  Sender: FDA-Public Use
  Company Number: DE-ABBOTT-10P-062-0646225-00

PATIENT
  Sex: Male
  Weight: 71 kg

DRUGS (5)
  1. HUMIRA [Suspect]
     Indication: POLYARTHRITIS
     Dates: start: 20090601
  2. METHOTREXATE [Concomitant]
     Indication: POLYARTHRITIS
  3. CLOPIDOGREL [Concomitant]
     Indication: THROMBOSIS PROPHYLAXIS
  4. LEFLUNOMIDE [Concomitant]
     Indication: POLYARTHRITIS
     Dosage: 10 MG, DAILY
  5. ANALGETICS [Concomitant]
     Indication: PAIN

REACTIONS (2)
  - BRONCHOPNEUMONIA [None]
  - CORONARY ARTERY DISEASE [None]
